FAERS Safety Report 19136155 (Version 2)
Quarter: 2021Q2

REPORT INFORMATION
  Report Type: Spontaneous
  Country: DE (occurrence: DE)
  Receive Date: 20210414
  Receipt Date: 20210608
  Transmission Date: 20210717
  Serious: Yes (Other)
  Sender: FDA-Public Use
  Company Number: DE-UCBSA-2021016881

PATIENT
  Age: 37 Year
  Sex: Female
  Weight: 76 kg

DRUGS (1)
  1. CIMZIA [Suspect]
     Active Substance: CERTOLIZUMAB PEGOL
     Indication: PSORIASIS
     Dosage: 200 MILLIGRAM, EV 2 WEEKS(QOW)
     Route: 058
     Dates: start: 20200304

REACTIONS (1)
  - Papilloma viral infection [Not Recovered/Not Resolved]

NARRATIVE: CASE EVENT DATE: 202102
